FAERS Safety Report 12559266 (Version 1)
Quarter: 2016Q3

REPORT INFORMATION
  Report Type: Spontaneous
  Country: BE (occurrence: BE)
  Receive Date: 20160715
  Receipt Date: 20160715
  Transmission Date: 20161109
  Serious: Yes (Hospitalization)
  Sender: FDA-Public Use
  Company Number: BE-JNJFOC-20160618105

PATIENT
  Sex: Female

DRUGS (7)
  1. XARELTO [Suspect]
     Active Substance: RIVAROXABAN
     Indication: PRODUCT USED FOR UNKNOWN INDICATION
     Route: 048
     Dates: start: 201606
  2. CLOPIDOGREL [Concomitant]
     Active Substance: CLOPIDOGREL BISULFATE
     Route: 065
  3. ATENOLOL/CHLORTHALIDONE [Concomitant]
     Active Substance: ATENOLOL\CHLORTHALIDONE
     Route: 065
  4. PANTOPRAZOLE [Concomitant]
     Active Substance: PANTOPRAZOLE SODIUM
     Route: 065
  5. DILTIAZEM HYDROCHLORIDE. [Concomitant]
     Active Substance: DILTIAZEM HYDROCHLORIDE
     Route: 065
  6. ASAFLOW [Concomitant]
     Active Substance: ASPIRIN
     Route: 065
  7. ZOCOR [Concomitant]
     Active Substance: SIMVASTATIN
     Route: 065

REACTIONS (12)
  - Peripheral swelling [Recovering/Resolving]
  - Blood urine present [Unknown]
  - Contusion [Recovering/Resolving]
  - Skin hypertrophy [Unknown]
  - Pruritus generalised [Unknown]
  - Back pain [Unknown]
  - Gastrointestinal disorder [Unknown]
  - Blood potassium abnormal [Unknown]
  - Haemorrhage [Recovering/Resolving]
  - Skin discolouration [Recovering/Resolving]
  - Asthenia [Unknown]
  - Haemorrhage [Unknown]
